FAERS Safety Report 8261341-3 (Version None)
Quarter: 2012Q2

REPORT INFORMATION
  Report Type: 
  Country: None (occurrence: None)
  Receive Date: 20120405
  Receipt Date: 20120328
  Transmission Date: 20120825
  Serious: Yes (Hospitalization, Other)
  Sender: FDA-Public Use
  Company Number: US-BAYER-2011-076184

PATIENT
  Age: 53 Year
  Sex: Female
  Weight: 113.38 kg

DRUGS (8)
  1. PAXIL [Concomitant]
     Indication: STRESS
     Dosage: UNK
     Route: 048
     Dates: start: 20020101
  2. ATENOLOL [Concomitant]
     Indication: HYPERTENSION
     Dosage: 100 MG, UNK
     Route: 048
     Dates: start: 20000101
  3. LEVAQUIN [Concomitant]
     Indication: INFLUENZA LIKE ILLNESS
     Dosage: 750 MG, UNK
     Route: 048
     Dates: start: 20100105
  4. TRIAMTERENE [Concomitant]
     Indication: HYPERTENSION
     Dosage: UNK
     Route: 048
     Dates: start: 20020101
  5. YAZ [Suspect]
     Dosage: UNK
     Dates: start: 20070101, end: 20100101
  6. ZYRTEC [Concomitant]
     Indication: HYPERSENSITIVITY
     Dosage: 10 MG, UNK
     Route: 048
     Dates: start: 20000101
  7. KLOR-CON [Concomitant]
     Indication: BLOOD POTASSIUM DECREASED
     Dosage: 10 MEQ, UNK
     Route: 048
     Dates: start: 20030101
  8. KLOR-CON [Concomitant]

REACTIONS (8)
  - STRESS [None]
  - PULMONARY EMBOLISM [None]
  - MYOCARDIAL INFARCTION [None]
  - CEREBROVASCULAR ACCIDENT [None]
  - GALLBLADDER DISORDER [None]
  - DEEP VEIN THROMBOSIS [None]
  - PAIN [None]
  - FEAR [None]
